FAERS Safety Report 12229071 (Version 1)
Quarter: 2016Q1

REPORT INFORMATION
  Report Type: Spontaneous
  Country: US (occurrence: None)
  Receive Date: 20160331
  Receipt Date: 20160331
  Transmission Date: 20160526
  Serious: Yes (Other)
  Sender: FDA-Public Use
  Company Number: None

PATIENT
  Age: 36 Year
  Sex: Female

DRUGS (1)
  1. HUMIRA [Suspect]
     Active Substance: ADALIMUMAB
     Indication: PSORIASIS
     Dosage: SUBCUTANEOUS 057 INJECTABLE QOW
     Route: 058
     Dates: start: 20151201

REACTIONS (1)
  - Dry mouth [None]

NARRATIVE: CASE EVENT DATE: 20160102
